FAERS Safety Report 7767763-9 (Version None)
Quarter: 2011Q3

REPORT INFORMATION
  Report Type: 
  Country: None (occurrence: None)
  Receive Date: 20110922
  Receipt Date: 20110607
  Transmission Date: 20111222
  Serious: No
  Sender: FDA-Public Use
  Company Number: US-ASTRAZENECA-2011SE34836

PATIENT
  Age: 60 Year
  Sex: Male

DRUGS (7)
  1. SEROQUEL [Suspect]
     Indication: SLEEP DISORDER
     Route: 048
  2. SEROQUEL [Suspect]
     Indication: PANIC ATTACK
     Route: 048
  3. VALLIUM [Concomitant]
  4. AMBIEN [Concomitant]
  5. HGH [Concomitant]
     Indication: HORMONE THERAPY
  6. PROPECIA [Concomitant]
  7. BUSPIRONE HCL [Concomitant]

REACTIONS (3)
  - PANIC ATTACK [None]
  - INSOMNIA [None]
  - DRUG DOSE OMISSION [None]
